FAERS Safety Report 10882809 (Version 1)
Quarter: 2015Q1

REPORT INFORMATION
  Report Type: Spontaneous
  Country: US (occurrence: None)
  Receive Date: 20150226
  Receipt Date: 20150226
  Transmission Date: 20150721
  Serious: Yes (Other)
  Sender: FDA-Public Use
  Company Number: None

PATIENT
  Age: 68 Year
  Sex: Male
  Weight: 165 kg

DRUGS (25)
  1. LORATADINE. [Concomitant]
     Active Substance: LORATADINE
  2. PSYLLIUM ORAL PWD [Concomitant]
  3. SELENIUM SULFIDE. [Concomitant]
     Active Substance: SELENIUM SULFIDE
  4. SIMVASTATIN. [Concomitant]
     Active Substance: SIMVASTATIN
  5. TIMOLOL MALEATE. [Concomitant]
     Active Substance: TIMOLOL MALEATE
  6. LANCET, FREESTYLE [Concomitant]
  7. HYDROCHLOROTHIAZIDE. [Concomitant]
     Active Substance: HYDROCHLOROTHIAZIDE
  8. OMEPRAZOLE. [Concomitant]
     Active Substance: OMEPRAZOLE
  9. PAROXETINE HCL [Concomitant]
     Active Substance: PAROXETINE HYDROCHLORIDE
  10. NADOLOL. [Concomitant]
     Active Substance: NADOLOL
  11. ASIPRIN [Concomitant]
  12. LATANOPROST. [Concomitant]
     Active Substance: LATANOPROST
  13. MENTHOL/M-SALICYLATE [Concomitant]
  14. ALCOHOL PREP PAD [Concomitant]
     Active Substance: ISOPROPYL ALCOHOL
  15. RAINTIDINE [Concomitant]
  16. BUSPIRONE HCL [Concomitant]
     Active Substance: BUSPIRONE HYDROCHLORIDE
  17. SIMETHICONE [Concomitant]
     Active Substance: DIMETHICONE\SILICON DIOXIDE\SIMETHICONE
  18. HYDROXYZINE HCL [Concomitant]
     Active Substance: HYDROXYZINE HYDROCHLORIDE
  19. ARTIFICIAL TEARS POLYVINYL ALCOHOL [Concomitant]
  20. ALPRAZOLAM. [Concomitant]
     Active Substance: ALPRAZOLAM
  21. KETOCONAZOLE. [Concomitant]
     Active Substance: KETOCONAZOLE
  22. TAMSULOSIN 0.4 MG [Suspect]
     Active Substance: TAMSULOSIN
     Indication: PROSTATOMEGALY
     Dosage: 0.4 MG, 1 TAB @ NIGHT, AT BEDTIME, MY MOUTH
     Route: 048
     Dates: start: 20140814, end: 20140825
  23. DERMA CERIN TOP CREAM [Concomitant]
  24. MULTIVITAMIN/MINERALS [Concomitant]
  25. FREESTYLE LITE (GLUCOSE) TEST STRIP [Concomitant]

REACTIONS (4)
  - Asthenia [None]
  - Dizziness postural [None]
  - Malaise [None]
  - Nervous system disorder [None]

NARRATIVE: CASE EVENT DATE: 20150225
